FAERS Safety Report 25990970 (Version 1)
Quarter: 2025Q4

REPORT INFORMATION
  Report Type: Spontaneous
  Country: CL (occurrence: CL)
  Receive Date: 20251103
  Receipt Date: 20251103
  Transmission Date: 20260119
  Serious: Yes (Hospitalization, Other)
  Sender: NOVO NORDISK
  Company Number: CL-NOVOPROD-1548427

PATIENT
  Age: 76 Year
  Sex: Female
  Weight: 72 kg

DRUGS (7)
  1. VICTOZA [Suspect]
     Active Substance: LIRAGLUTIDE
     Indication: Blood glucose increased
     Dosage: 1.2 MG
     Route: 058
     Dates: start: 202403, end: 20251009
  2. FESEMA [SALBUTAMOL] [Concomitant]
     Indication: Asthma
     Dosage: 100 ?G, QD
     Route: 055
     Dates: start: 2002
  3. FESEMA [SALBUTAMOL] [Concomitant]
     Indication: Chronic obstructive pulmonary disease
  4. ATROVENT [Concomitant]
     Active Substance: IPRATROPIUM BROMIDE
     Indication: Chronic obstructive pulmonary disease
     Dosage: 20 ?G, QD
     Route: 055
     Dates: start: 2002
  5. ATROVENT [Concomitant]
     Active Substance: IPRATROPIUM BROMIDE
     Indication: Asthma
  6. PREDNISONE [Concomitant]
     Active Substance: PREDNISONE
     Indication: Chronic obstructive pulmonary disease
     Dosage: SOS
     Route: 048
     Dates: start: 2002
  7. PREDNISONE [Concomitant]
     Active Substance: PREDNISONE
     Indication: Asthma

REACTIONS (6)
  - Fluid retention [Recovered/Resolved]
  - Respiratory failure [Recovered/Resolved]
  - Flatulence [Unknown]
  - Off label use [Recovered/Resolved]
  - Product communication issue [Unknown]
  - Wrong technique in product usage process [Unknown]

NARRATIVE: CASE EVENT DATE: 20240301
